FAERS Safety Report 9548652 (Version 1)
Quarter: 2013Q2

REPORT INFORMATION
  Report Type: Spontaneous
  Country: US (occurrence: None)
  Receive Date: 20130606
  Receipt Date: 20130606
  Transmission Date: 20140414
  Serious: Yes (Other)
  Sender: FDA-Public Use
  Company Number: 1303USA007723

PATIENT
  Age: 74 Year
  Sex: Female

DRUGS (1)
  1. ZIOPTAN [Suspect]
     Dosage: 1 DF, HS, 1 DOSE EACH EYE AT BEDTIME ONCE A DAY, TOPICAL
     Route: 061
     Dates: start: 20130304

REACTIONS (2)
  - Tinnitus [None]
  - Sensation of foreign body [None]
